FAERS Safety Report 12633203 (Version 2)
Quarter: 2016Q3

REPORT INFORMATION
  Report Type: Spontaneous
  Country: US (occurrence: US)
  Receive Date: 20160808
  Receipt Date: 20160808
  Transmission Date: 20161109
  Serious: No
  Sender: FDA-Public Use
  Company Number: US-BEH-2016059175

PATIENT
  Sex: Female
  Weight: 76 kg

DRUGS (31)
  1. HIZENTRA [Suspect]
     Active Substance: HUMAN IMMUNOGLOBULIN G
     Indication: IMMUNODEFICIENCY COMMON VARIABLE
  2. LIPITOR [Concomitant]
     Active Substance: ATORVASTATIN CALCIUM
  3. LIDOCAINE. [Concomitant]
     Active Substance: LIDOCAINE
     Dosage: ADH. PATCH
  4. DIPHENHYDRAMINE. [Concomitant]
     Active Substance: DIPHENHYDRAMINE
  5. SYMBICORT [Concomitant]
     Active Substance: BUDESONIDE\FORMOTEROL FUMARATE DIHYDRATE
     Dosage: 160-4.5 MCG HFA AER AD
  6. VOLTAREN [Concomitant]
     Active Substance: DICLOFENAC SODIUM
     Dosage: (GRAM)
  7. THERATEARS [Concomitant]
     Active Substance: CARBOXYMETHYLCELLULOSE SODIUM
     Dosage: DROPERETTE
  8. AQUAPHOR [Concomitant]
     Active Substance: PETROLATUM
     Dosage: (G)
  9. MOMETASONE FUROATE. [Concomitant]
     Active Substance: MOMETASONE FUROATE
     Dosage: (GM)
  10. LABETALOL HCL [Concomitant]
     Active Substance: LABETALOL HYDROCHLORIDE
  11. METHOTREXATE. [Concomitant]
     Active Substance: METHOTREXATE
  12. ZYRTEC [Concomitant]
     Active Substance: CETIRIZINE HYDROCHLORIDE
  13. PROAIR HFA [Concomitant]
     Active Substance: ALBUTEROL SULFATE
     Dosage: HFA AER AD
  14. SINGULAIR [Concomitant]
     Active Substance: MONTELUKAST SODIUM
  15. DOXEPIN HCL [Concomitant]
     Active Substance: DOXEPIN HYDROCHLORIDE
     Dosage: 10 MG/ML ORAL CONC
  16. NORVASC [Concomitant]
     Active Substance: AMLODIPINE BESYLATE
  17. CHOLESTYRAMINE. [Concomitant]
     Active Substance: CHOLESTYRAMINE
     Dosage: POWD PACK
  18. ACETAMINOPHEN. [Concomitant]
     Active Substance: ACETAMINOPHEN
  19. PROBIOTIC [Concomitant]
     Active Substance: PROBIOTICS NOS
     Dosage: 15B CELL CAP SPRINK
  20. VALSARTAN-HYDROCHLOROTHIAZIDE [Concomitant]
     Active Substance: HYDROCHLOROTHIAZIDE\VALSARTAN
  21. CHILDREN^S ASPIRIN [Concomitant]
     Active Substance: ASPIRIN
  22. TOPAMAX [Concomitant]
     Active Substance: TOPIRAMATE
  23. NYSTATIN. [Concomitant]
     Active Substance: NYSTATIN
     Dosage: 100000/G (GM)
  24. EPI-PEN AUTOINJECTOR [Concomitant]
  25. IMODIUM A-D [Concomitant]
     Active Substance: LOPERAMIDE HYDROCHLORIDE
  26. SERTRALINE HCL [Concomitant]
     Active Substance: SERTRALINE HYDROCHLORIDE
  27. PREDNISONE. [Concomitant]
     Active Substance: PREDNISONE
     Dosage: DS PK
  28. PLAQUENIL [Concomitant]
     Active Substance: HYDROXYCHLOROQUINE SULFATE
  29. CEFTIN [Concomitant]
     Active Substance: CEFUROXIME AXETIL
     Dosage: 125 MG/5ML SUSP RECON
  30. PROTONIX [Concomitant]
     Active Substance: PANTOPRAZOLE SODIUM
     Dosage: DR
  31. NEURONTIN [Concomitant]
     Active Substance: GABAPENTIN

REACTIONS (1)
  - Headache [Unknown]
